FAERS Safety Report 16381827 (Version 5)
Quarter: 2024Q2

REPORT INFORMATION
  Report Type: Spontaneous
  Country: JP (occurrence: JP)
  Receive Date: 20190603
  Receipt Date: 20240530
  Transmission Date: 20240716
  Serious: Yes (Death, Life-Threatening, Hospitalization, Other)
  Sender: FDA-Public Use
  Company Number: JP-BRISTOL-MYERS SQUIBB COMPANY-BMS-2019-042135

PATIENT
  Age: 80 Year
  Sex: Male
  Weight: 36.2 kg

DRUGS (1)
  1. OPDIVO [Suspect]
     Active Substance: NIVOLUMAB
     Indication: Gastric cancer
     Route: 041
     Dates: start: 20190416, end: 20190729

REACTIONS (10)
  - Ileus [Fatal]
  - Pyelonephritis [Recovered/Resolved]
  - Pneumonia [Recovered/Resolved]
  - Pneumonitis [Not Recovered/Not Resolved]
  - Malignant neoplasm progression [Unknown]
  - Bacterial translocation [Unknown]
  - Renal failure [Unknown]
  - Condition aggravated [Unknown]
  - Hydronephrosis [Unknown]
  - Liver disorder [Unknown]

NARRATIVE: CASE EVENT DATE: 20190422
